FAERS Safety Report 4943106-0 (Version None)
Quarter: 2006Q1

REPORT INFORMATION
  Report Type: 
  Country: None (occurrence: None)
  Receive Date: 20060314
  Receipt Date: 20051031
  Transmission Date: 20060701
  Serious: Yes (Hospitalization, Disabling)
  Sender: FDA-Public Use
  Company Number: US-MERCK-0511USA00325

PATIENT
  Age: 40 Year
  Sex: Male

DRUGS (1)
  1. VIOXX [Suspect]
     Route: 048
     Dates: start: 19990101, end: 20040801

REACTIONS (6)
  - ARTHRALGIA [None]
  - ARTHROPOD BITE [None]
  - ATELECTASIS [None]
  - EPICONDYLITIS [None]
  - ERECTILE DYSFUNCTION [None]
  - TRANSIENT ISCHAEMIC ATTACK [None]
